FAERS Safety Report 5037239-0 (Version None)
Quarter: 2006Q2

REPORT INFORMATION
  Report Type: 
  Country: None (occurrence: None)
  Receive Date: 20060628
  Receipt Date: 20001228
  Transmission Date: 20061013
  Serious: Yes (Death)
  Sender: FDA-Public Use
  Company Number: AU-AMGEN-US184216

PATIENT
  Sex: Male

DRUGS (6)
  1. ENBREL [Suspect]
     Indication: WEGENER'S GRANULOMATOSIS
     Route: 058
     Dates: start: 20000804, end: 20000807
  2. GENTAMICIN [Concomitant]
  3. CEFTAZIDIME [Concomitant]
  4. METHYLPREDNISOLONE [Concomitant]
  5. NEUPOGEN [Concomitant]
  6. INSULIN [Concomitant]

REACTIONS (5)
  - BRONCHOPNEUMONIA [None]
  - LARGE INTESTINE PERFORATION [None]
  - PERITONITIS [None]
  - SEPSIS [None]
  - SPLEEN CONGESTION [None]
